FAERS Safety Report 9021204 (Version 1)
Quarter: 2013Q1

REPORT INFORMATION
  Report Type: Spontaneous
  Country: US (occurrence: US)
  Receive Date: 20130119
  Receipt Date: 20130119
  Transmission Date: 20140127
  Serious: No
  Sender: FDA-Public Use
  Company Number: US-ALLERGAN-1203428US

PATIENT
  Age: 59 Year
  Sex: Female
  Weight: 64 kg

DRUGS (9)
  1. BOTOX? [Suspect]
     Indication: MIGRAINE
     Dosage: UNK
     Route: 030
     Dates: start: 20120217, end: 20120217
  2. PAMELOR [Concomitant]
     Indication: MIGRAINE
     Dosage: UNK
     Route: 048
  3. KLONOPIN [Concomitant]
     Indication: MIGRAINE
     Dosage: UNK
     Route: 048
  4. COPAXONE [Concomitant]
     Indication: PRODUCT USED FOR UNKNOWN INDICATION
     Dosage: UNK
  5. CALAN [Concomitant]
     Indication: MIGRAINE
     Dosage: UNK
     Route: 048
     Dates: end: 20120307
  6. ZOMIG [Concomitant]
     Indication: MIGRAINE
     Dosage: UNK
     Route: 048
  7. ORUDIS                             /00321701/ [Concomitant]
     Indication: ANTIINFLAMMATORY THERAPY
     Dosage: UNK
     Route: 048
  8. COMPAZINE                          /00013302/ [Concomitant]
     Indication: PRODUCT USED FOR UNKNOWN INDICATION
     Dosage: UNK
     Route: 048
  9. ATIVAN [Concomitant]
     Indication: NERVOUSNESS
     Route: 048

REACTIONS (4)
  - Eyelid oedema [Not Recovered/Not Resolved]
  - Neck pain [Not Recovered/Not Resolved]
  - Neuralgia [Not Recovered/Not Resolved]
  - Swelling face [Unknown]
